FAERS Safety Report 6187308-7 (Version None)
Quarter: 2009Q2

REPORT INFORMATION
  Report Type: 
  Country: None (occurrence: None)
  Receive Date: 20090512
  Receipt Date: 20090430
  Transmission Date: 20091009
  Serious: Yes (Hospitalization)
  Sender: FDA-Public Use
  Company Number: IN-JNJFOC-20090404118

PATIENT
  Sex: Female
  Weight: 68 kg

DRUGS (6)
  1. GOLIMUMAB [Suspect]
     Route: 058
  2. GOLIMUMAB [Suspect]
     Route: 058
  3. GOLIMUMAB [Suspect]
     Indication: COLITIS ULCERATIVE
     Route: 058
  4. AZORAN [Concomitant]
     Indication: COLITIS ULCERATIVE
  5. SYSFOL [Concomitant]
     Indication: COLITIS ULCERATIVE
  6. BECO ZINC [Concomitant]
     Indication: COLITIS ULCERATIVE

REACTIONS (2)
  - ALTERED STATE OF CONSCIOUSNESS [None]
  - HEADACHE [None]
